FAERS Safety Report 22046713 (Version 1)
Quarter: 2023Q1

REPORT INFORMATION
  Report Type: Report from Study
  Country: KW (occurrence: KW)
  Receive Date: 20230228
  Receipt Date: 20230228
  Transmission Date: 20230418
  Serious: Yes (Death, Other)
  Sender: FDA-Public Use
  Company Number: KW-JNJFOC-20230249446

PATIENT
  Age: 36 Year
  Sex: Male

DRUGS (1)
  1. IMBRUVICA [Suspect]
     Active Substance: IBRUTINIB
     Indication: Chronic lymphocytic leukaemia
     Route: 048
     Dates: start: 20210921, end: 20221126

REACTIONS (2)
  - Post procedural sepsis [Fatal]
  - Surgery [Fatal]

NARRATIVE: CASE EVENT DATE: 20221230
